FAERS Safety Report 23971551 (Version 1)
Quarter: 2024Q2

REPORT INFORMATION
  Report Type: Spontaneous
  Country: US (occurrence: US)
  Receive Date: 20240613
  Receipt Date: 20240613
  Transmission Date: 20240716
  Serious: No
  Sender: FDA-Public Use
  Company Number: US-009507513-2405USA004319

PATIENT
  Sex: Female

DRUGS (3)
  1. KEYTRUDA [Suspect]
     Active Substance: PEMBROLIZUMAB
     Indication: Bone cancer metastatic
     Dosage: UNK
  2. CARBOPLATIN [Concomitant]
     Active Substance: CARBOPLATIN
     Indication: Bone cancer metastatic
     Dosage: UNK
  3. FLUOROURACIL SODIUM [Concomitant]
     Active Substance: FLUOROURACIL SODIUM
     Indication: Bone cancer metastatic
     Dosage: UNK

REACTIONS (2)
  - Mucosal inflammation [Unknown]
  - Off label use [Unknown]
